FAERS Safety Report 9419575 (Version 1)
Quarter: 2013Q3

REPORT INFORMATION
  Report Type: Spontaneous
  Country: US (occurrence: None)
  Receive Date: 20130724
  Receipt Date: 20130724
  Transmission Date: 20140515
  Serious: Yes (Other)
  Sender: FDA-Public Use
  Company Number: None

PATIENT
  Age: 28 Year
  Sex: Female
  Weight: 52.16 kg

DRUGS (1)
  1. CREST PRO-HEALTH CLINICAL GUM PROTECTION [Suspect]
     Dosage: RECOMMENDED 2
     Dates: start: 201303, end: 201304

REACTIONS (7)
  - Skin exfoliation [None]
  - Dry mouth [None]
  - Stomatitis [None]
  - Gingival erythema [None]
  - Tongue ulceration [None]
  - Oropharyngeal pain [None]
  - Impaired healing [None]
